FAERS Safety Report 6078014-8 (Version None)
Quarter: 2009Q1

REPORT INFORMATION
  Report Type: 
  Country: None (occurrence: None)
  Receive Date: 20090213
  Receipt Date: 20090128
  Transmission Date: 20090719
  Serious: Yes (Other)
  Sender: FDA-Public Use
  Company Number: US-PFIZER INC-2009162082

PATIENT
  Sex: Male
  Weight: 59.41 kg

DRUGS (19)
  1. CHANTIX [Suspect]
     Indication: SMOKING CESSATION THERAPY
     Dosage: 1 MG, 2X/DAY
     Route: 048
     Dates: start: 20071201, end: 20090201
  2. PROZAC [Concomitant]
     Dosage: UNK
  3. KAOPECTATE [Concomitant]
     Indication: CONSTIPATION
  4. ACETYLSALICYLIC ACID [Concomitant]
     Indication: ARRHYTHMIA
     Dosage: 81 MG, UNK
  5. SIMVASTATIN [Concomitant]
     Indication: BLOOD CHOLESTEROL INCREASED
  6. CARVEDILOL [Concomitant]
     Indication: CARDIAC DISORDER
     Dosage: UNK
  7. TRAZODONE HYDROCHLORIDE [Concomitant]
     Indication: SLEEP DISORDER
     Dosage: UNK
  8. NITROGLYCERIN [Concomitant]
     Indication: ANGINA PECTORIS
  9. OMEPRAZOLE [Concomitant]
     Indication: GASTROOESOPHAGEAL REFLUX DISEASE
     Dosage: UNK
  10. COUMADIN [Concomitant]
     Dosage: UNK
  11. FORADIL [Concomitant]
     Indication: BRONCHITIS
     Dosage: UNK
  12. FORADIL [Concomitant]
     Indication: CHRONIC OBSTRUCTIVE PULMONARY DISEASE
  13. ALBUTEROL [Concomitant]
     Indication: CHRONIC OBSTRUCTIVE PULMONARY DISEASE
     Dosage: UNK
  14. SPIRIVA [Concomitant]
     Indication: EMPHYSEMA
     Dosage: UNK
  15. MORPHINE [Concomitant]
     Indication: PAIN
     Dosage: UNK
  16. MORPHINE [Concomitant]
     Indication: OSTEOARTHRITIS
  17. NASAL SALINE [Concomitant]
     Indication: SINUSITIS
     Dosage: UNK
  18. GLUCOSAMINE [Concomitant]
     Indication: OSTEOARTHRITIS
  19. FLUOXETINE HYDROCHLORIDE [Concomitant]

REACTIONS (4)
  - DIZZINESS [None]
  - GAIT DISTURBANCE [None]
  - TREMOR [None]
  - VERTIGO [None]
